FAERS Safety Report 9236754 (Version 2)
Quarter: 2013Q2

REPORT INFORMATION
  Report Type: Report from Study
  Country: US (occurrence: US)
  Receive Date: 20130417
  Receipt Date: 20130521
  Transmission Date: 20140414
  Serious: Yes (Congenital Anomaly, Other)
  Sender: FDA-Public Use
  Company Number: US-ROCHE-1212337

PATIENT
  Age: 34 Year
  Sex: Female
  Weight: 67.9 kg

DRUGS (4)
  1. RITUXAN [Suspect]
     Indication: MYASTHENIA GRAVIS
     Dosage: DAY 1 AND DAY 15
     Route: 042
     Dates: start: 20120705
  2. ACETAMINOPHEN [Concomitant]
     Indication: PROPHYLAXIS
     Route: 065
  3. PYRIDOSTIGMINE [Concomitant]
     Route: 048
  4. PREDNISONE [Concomitant]
     Indication: MYASTHENIA GRAVIS
     Dosage: 2.5 TABLETS EVERY OTHER DAY
     Route: 048

REACTIONS (2)
  - Abortion incomplete [Recovered/Resolved]
  - Exposure during pregnancy [Unknown]
